FAERS Safety Report 12866930 (Version 1)
Quarter: 2016Q4

REPORT INFORMATION
  Report Type: Spontaneous
  Country: US (occurrence: US)
  Receive Date: 20161020
  Receipt Date: 20161020
  Transmission Date: 20170207
  Serious: No
  Sender: FDA-Public Use
  Company Number: US-JAZZ-2016-US-014417

PATIENT
  Sex: Female

DRUGS (41)
  1. XYREM [Suspect]
     Active Substance: SODIUM OXYBATE
     Dosage: 3.75 G, BID
     Route: 048
     Dates: start: 201209, end: 201210
  2. CALCIUM +D [Concomitant]
     Active Substance: CALCIUM\VITAMIN D
  3. IBUPROFEN. [Concomitant]
     Active Substance: IBUPROFEN
  4. BIOTENE PBF [Concomitant]
     Active Substance: SODIUM FLUORIDE
  5. SINGULAIR [Concomitant]
     Active Substance: MONTELUKAST SODIUM
  6. ALDACTONE [Concomitant]
     Active Substance: SPIRONOLACTONE
  7. CELEXA [Concomitant]
     Active Substance: CITALOPRAM HYDROBROMIDE
  8. ATROVENT [Concomitant]
     Active Substance: IPRATROPIUM BROMIDE
  9. MAGNESIUM OXIDE. [Concomitant]
     Active Substance: MAGNESIUM OXIDE
  10. ENJUVIA [Concomitant]
     Active Substance: ESTROGENS, CONJUGATED SYNTHETIC B
  11. ALBUTEROL SULFATE. [Concomitant]
     Active Substance: ALBUTEROL SULFATE
  12. MAGNESIUM [Concomitant]
     Active Substance: MAGNESIUM
  13. YAZ [Concomitant]
     Active Substance: DROSPIRENONE\ETHINYL ESTRADIOL
  14. XYREM [Suspect]
     Active Substance: SODIUM OXYBATE
     Indication: NARCOLEPSY
     Dosage: 2.25 G, BID
     Route: 048
     Dates: start: 2012, end: 201204
  15. AZITHROMYCIN ANHYDROUS. [Concomitant]
     Active Substance: AZITHROMYCIN ANHYDROUS
  16. AMOXICILLIN. [Concomitant]
     Active Substance: AMOXICILLIN
  17. VYVANSE [Concomitant]
     Active Substance: LISDEXAMFETAMINE DIMESYLATE
  18. COENZYME Q10 [Concomitant]
     Active Substance: UBIDECARENONE
  19. TIZANIDINE. [Concomitant]
     Active Substance: TIZANIDINE
  20. AVELOX ABC [Concomitant]
  21. BEE POLLEN [Concomitant]
     Active Substance: BEE POLLEN
  22. ZYRTEC-D [Concomitant]
     Active Substance: CETIRIZINE HYDROCHLORIDE\PSEUDOEPHEDRINE HYDROCHLORIDE
  23. XYREM [Suspect]
     Active Substance: SODIUM OXYBATE
     Dosage: 3 G, BID
     Route: 048
     Dates: start: 201403, end: 2014
  24. XYREM [Suspect]
     Active Substance: SODIUM OXYBATE
     Dosage: 2.25 G, BID
     Route: 048
     Dates: start: 201607, end: 201607
  25. PREDNISONE. [Concomitant]
     Active Substance: PREDNISONE
  26. CLARITIN [Concomitant]
     Active Substance: LORATADINE
  27. QNASL [Concomitant]
     Active Substance: BECLOMETHASONE DIPROPIONATE
  28. EXCEDRIN MIGRAINE [Concomitant]
     Active Substance: ACETAMINOPHEN\ASPIRIN\CAFFEINE
  29. RELPAX [Concomitant]
     Active Substance: ELETRIPTAN HYDROBROMIDE
  30. XYREM [Suspect]
     Active Substance: SODIUM OXYBATE
     Dosage: 4.5 G, BID
     Route: 048
     Dates: start: 201210, end: 2013
  31. XYREM [Suspect]
     Active Substance: SODIUM OXYBATE
     Dosage: 3 G, BID
     Route: 048
     Dates: start: 201607
  32. DEXILANT [Concomitant]
     Active Substance: DEXLANSOPRAZOLE
  33. AMERGE [Concomitant]
     Active Substance: NARATRIPTAN HYDROCHLORIDE
  34. MAXALT [Concomitant]
     Active Substance: RIZATRIPTAN BENZOATE
  35. DULERA [Concomitant]
     Active Substance: FORMOTEROL FUMARATE DIHYDRATE\MOMETASONE FUROATE
  36. NUVIGIL [Concomitant]
     Active Substance: ARMODAFINIL
  37. VENTOLIN HFA [Concomitant]
     Active Substance: ALBUTEROL SULFATE
  38. XYREM [Suspect]
     Active Substance: SODIUM OXYBATE
     Dosage: 3 G, BID
     Route: 048
     Dates: start: 201204, end: 2012
  39. PRILOSEC [Concomitant]
     Active Substance: OMEPRAZOLE MAGNESIUM
  40. ZONEGRAN [Concomitant]
     Active Substance: ZONISAMIDE
  41. PATANASE [Concomitant]
     Active Substance: OLOPATADINE HYDROCHLORIDE

REACTIONS (1)
  - Asthma [Not Recovered/Not Resolved]
